FAERS Safety Report 4981653-6 (Version None)
Quarter: 2006Q2

REPORT INFORMATION
  Report Type: 
  Country: None (occurrence: None)
  Receive Date: 20060420
  Receipt Date: 20060420
  Transmission Date: 20061013
  Serious: No
  Sender: FDA-Public Use
  Company Number: None

PATIENT
  Age: 50 Year
  Sex: Female
  Weight: 127 kg

DRUGS (7)
  1. ROCEPHIN [Suspect]
     Indication: RESPIRATORY DISORDER
     Dosage: 1 GM X1
     Dates: start: 20060216
  2. LEVAQUIN [Concomitant]
  3. VANCO [Concomitant]
  4. WARFARIN SODIUM [Concomitant]
  5. DIGOXIN [Concomitant]
  6. ZOCOR [Concomitant]
  7. FRAGMIN [Concomitant]

REACTIONS (2)
  - ANGIONEUROTIC OEDEMA [None]
  - DYSPNOEA [None]
